FAERS Safety Report 15928658 (Version 2)
Quarter: 2019Q1

REPORT INFORMATION
  Report Type: Report from Study
  Country: FR (occurrence: FR)
  Receive Date: 20190206
  Receipt Date: 20190222
  Transmission Date: 20190417
  Serious: Yes (Hospitalization, Other)
  Sender: FDA-Public Use
  Company Number: FR-VELOXIS PHARMACEUTICALS, INC.-2019VELFR1334

PATIENT
  Age: 65 Year
  Sex: Female
  Weight: 60 kg

DRUGS (18)
  1. CORTANCYL [Concomitant]
     Active Substance: PREDNISONE
     Indication: RENAL TRANSPLANT
     Dosage: 5 MG, QD
     Dates: start: 20180520
  2. MAG 2                              /00454301/ [Concomitant]
     Active Substance: MAGNESIUM CARBONATE
     Indication: HYPOMAGNESAEMIA
     Dosage: 100 MG, QD IN THE EVENING
     Dates: start: 20181130, end: 20181211
  3. VALGANCICLOVIR. [Concomitant]
     Active Substance: VALGANCICLOVIR
     Indication: ANTIFUNGAL PROPHYLAXIS
     Dosage: 450 MG, QD
     Dates: start: 20180524
  4. IMOVANE [Concomitant]
     Active Substance: ZOPICLONE
     Indication: DEPRESSIVE SYMPTOM
     Dosage: 3.75 MG, QD
     Dates: start: 20181209
  5. MYFORTIC [Concomitant]
     Active Substance: MYCOPHENOLATE SODIUM
     Indication: RENAL TRANSPLANT
     Dosage: 360 MG, QD
     Dates: start: 20180515
  6. APROVEL [Concomitant]
     Active Substance: IRBESARTAN
     Indication: HYPERTENSION
     Dosage: 75 MG, QD
     Dates: start: 20181026
  7. DEROXAT [Concomitant]
     Active Substance: PAROXETINE HYDROCHLORIDE
     Indication: DEPRESSION
     Dosage: 20 MG, QD
     Dates: start: 20181124
  8. FOSCAVIR [Concomitant]
     Active Substance: FOSCARNET SODIUM
     Indication: ANTIVIRAL PROPHYLAXIS
     Dosage: 4 G IN 50 ML NACL, QD
     Dates: start: 20181126, end: 20181210
  9. ENVARSUS XR [Suspect]
     Active Substance: TACROLIMUS
     Indication: RENAL TRANSPLANT
     Dosage: 8 MG, QD
     Route: 048
     Dates: start: 20181130, end: 20181210
  10. SODIUM BICARBONATE. [Concomitant]
     Active Substance: SODIUM BICARBONATE
     Dosage: 2 G, QD
     Dates: start: 20181212
  11. NOVONORM [Concomitant]
     Active Substance: REPAGLINIDE
     Indication: DIABETES MELLITUS
     Dosage: 1 MG, QD
     Dates: start: 20180731
  12. CALCIDIA [Concomitant]
     Active Substance: CALCIUM CARBONATE
     Indication: HYPOCALCAEMIA
     Dosage: 1 BAG, QD
     Dates: start: 20181129, end: 20181207
  13. ZYMAD [Concomitant]
     Active Substance: CHOLECALCIFEROL
     Indication: VITAMIN D DEFICIENCY
     Dosage: 80000 UI PER MONTH
     Dates: start: 20180523
  14. SODIUM BICARBONATE. [Concomitant]
     Active Substance: SODIUM BICARBONATE
     Indication: METABOLIC ACIDOSIS
     Dosage: 3 G, QD
     Dates: start: 20180523, end: 20181211
  15. ARANESP [Concomitant]
     Active Substance: DARBEPOETIN ALFA
     Indication: ANAEMIA
     Dosage: 50 ?G, PER WEEK
     Route: 065
     Dates: start: 20181208
  16. ENVARSUS XR [Suspect]
     Active Substance: TACROLIMUS
     Dosage: 7 MG, QD
     Route: 048
     Dates: start: 20181211, end: 20181228
  17. TRANDATE [Concomitant]
     Active Substance: LABETALOL HYDROCHLORIDE
     Indication: HYPERTENSION
     Dosage: 600 MG, QD
     Dates: start: 20181010
  18. LEVEMIR [Concomitant]
     Active Substance: INSULIN DETEMIR
     Indication: DIABETES MELLITUS
     Dosage: 5 IU, QD
     Dates: start: 20181124

REACTIONS (7)
  - Neutropenia [Recovering/Resolving]
  - Leukopenia [Recovering/Resolving]
  - Asthenia [Not Recovered/Not Resolved]
  - Cytomegalovirus infection [Not Recovered/Not Resolved]
  - Acute kidney injury [Recovered/Resolved]
  - Anaemia [Not Recovered/Not Resolved]
  - Thrombocytopenia [Recovered/Resolved]

NARRATIVE: CASE EVENT DATE: 20181206
